FAERS Safety Report 8012101-X (Version None)
Quarter: 2011Q4

REPORT INFORMATION
  Report Type: 
  Country: None (occurrence: None)
  Receive Date: 20111228
  Receipt Date: 20111214
  Transmission Date: 20120403
  Serious: Yes (Hospitalization)
  Sender: FDA-Public Use
  Company Number: PL-MYLANLABS-2011S1025994

PATIENT
  Age: 31 Year
  Sex: Female
  Weight: 80 kg

DRUGS (8)
  1. ZIDOVUDINE [Suspect]
     Indication: HIV INFECTION
     Route: 065
  2. LAMIVUDINE [Suspect]
     Indication: HIV INFECTION
     Route: 065
  3. TENOFOVIR DISOPROXIL FUMARATE [Suspect]
     Indication: HIV INFECTION
     Route: 065
  4. STAVUDINE [Suspect]
     Indication: HIV INFECTION
     Dosage: UNKNOWN
  5. NELFINAVIR MESYLATE [Suspect]
     Indication: HIV INFECTION
     Route: 065
  6. KALETRA                            /01506501/ [Suspect]
     Indication: HIV INFECTION
     Route: 065
  7. SAQUINAVIR [Suspect]
     Indication: HIV INFECTION
     Route: 065
  8. METHADONE HCL [Concomitant]
     Dosage: 60MG DAILY
     Route: 065

REACTIONS (1)
  - OSTEOPOROSIS [None]
